FAERS Safety Report 5909659-0 (Version None)
Quarter: 2008Q4

REPORT INFORMATION
  Report Type: 
  Country: None (occurrence: None)
  Receive Date: 20081007
  Receipt Date: 20081001
  Transmission Date: 20090506
  Serious: Yes (Death, Other)
  Sender: FDA-Public Use
  Company Number: PHHY2008DE23092

PATIENT
  Sex: Female
  Weight: 85 kg

DRUGS (5)
  1. ZOMETA [Suspect]
     Indication: BONE DISORDER
     Dosage: 4 MG EVERY 4 WEEKS
     Route: 042
     Dates: start: 20060628
  2. TAXOTERE [Concomitant]
     Dosage: EVERY 3 WEEKS
     Dates: start: 20060628, end: 20070523
  3. TAXOTERE [Concomitant]
     Dosage: UNK
     Dates: start: 20071212
  4. BLOOD, WHOLE [Concomitant]
     Indication: ANAEMIA
  5. PREDNISOLONE [Concomitant]

REACTIONS (7)
  - ANAEMIA [None]
  - FALL [None]
  - MALIGNANT NEOPLASM PROGRESSION [None]
  - METASTASES TO BONE [None]
  - METASTASIS [None]
  - PROSTATE CANCER RECURRENT [None]
  - SKULL FRACTURE [None]
